FAERS Safety Report 18325198 (Version 2)
Quarter: 2020Q4

REPORT INFORMATION
  Report Type: Report from Study
  Country: IN (occurrence: IN)
  Receive Date: 20200928
  Receipt Date: 20201019
  Transmission Date: 20210113
  Serious: Yes (Death, Hospitalization, Other)
  Sender: FDA-Public Use
  Company Number: IN-ROCHE-2682249

PATIENT
  Age: 67 Year
  Sex: Female
  Weight: 76 kg

DRUGS (8)
  1. AZEE [Concomitant]
     Indication: PNEUMONIA
     Route: 042
  2. TOCILIZUMAB. [Suspect]
     Active Substance: TOCILIZUMAB
     Indication: COVID-19
     Route: 042
  3. AUGMENTIN [Concomitant]
     Active Substance: AMOXICILLIN\CLAVULANATE POTASSIUM
     Indication: PNEUMONIA
     Route: 042
     Dates: start: 20200713, end: 20200716
  4. LASIX [Concomitant]
     Active Substance: FUROSEMIDE
     Indication: CARDIAC FAILURE
     Route: 042
     Dates: start: 20200713, end: 20200716
  5. IRON FOLIC [Concomitant]
     Route: 065
     Dates: start: 20200718, end: 20200723
  6. PANTOP [Concomitant]
     Active Substance: PANTOPRAZOLE SODIUM
     Route: 042
     Dates: start: 20200718, end: 20200723
  7. IRON FOLIC [Concomitant]
     Indication: ANAEMIA
     Route: 048
     Dates: start: 20200717, end: 20200723
  8. MEROPENEM. [Concomitant]
     Active Substance: MEROPENEM
     Indication: PNEUMONIA
     Route: 042
     Dates: start: 20200718, end: 20200723

REACTIONS (4)
  - Cardiac failure [Fatal]
  - Pyrexia [Unknown]
  - Hypokalaemia [Unknown]
  - Leukocytosis [Unknown]

NARRATIVE: CASE EVENT DATE: 20200719
